FAERS Safety Report 14789296 (Version 1)
Quarter: 2018Q2

REPORT INFORMATION
  Report Type: Spontaneous
  Country: US (occurrence: US)
  Receive Date: 20180413
  Receipt Date: 20180413
  Transmission Date: 20180711
  Serious: No
  Sender: FDA-Public Use
  Company Number: None

PATIENT
  Age: 68 Year
  Sex: Male

DRUGS (19)
  1. SOMA [Concomitant]
     Active Substance: CARISOPRODOL
  2. POTASSIUM CHLORIDE. [Concomitant]
     Active Substance: POTASSIUM CHLORIDE
  3. OMEGA-3 ACIDS [Concomitant]
     Active Substance: OMEGA-3 FATTY ACIDS
  4. HYDROCODONE-ACETAMINOPHEN [Concomitant]
     Active Substance: ACETAMINOPHEN\HYDROCODONE
  5. FENOFIBRATE. [Concomitant]
     Active Substance: FENOFIBRATE
  6. VITAMIN D [Concomitant]
     Active Substance: CHOLECALCIFEROL
  7. OXYCODONE HCI [Concomitant]
  8. ATENOLOL. [Concomitant]
     Active Substance: ATENOLOL
  9. METHYLPREDNISOLONE ACETATE. [Concomitant]
     Active Substance: METHYLPREDNISOLONE ACETATE
  10. LOSARTAN POTASSIUM. [Concomitant]
     Active Substance: LOSARTAN POTASSIUM
  11. ASPIRIN. [Concomitant]
     Active Substance: ASPIRIN
  12. ZYTIGA [Suspect]
     Active Substance: ABIRATERONE ACETATE
     Indication: PROSTATE CANCER
     Route: 048
     Dates: start: 20180130
  13. PROAIR HFA [Concomitant]
     Active Substance: ALBUTEROL SULFATE
  14. TOBRAMYCIN-DEXAMETHASONE [Concomitant]
     Active Substance: DEXAMETHASONE\TOBRAMYCIN
  15. NITROSTAT [Concomitant]
     Active Substance: NITROGLYCERIN
  16. FUROSEMIDE. [Concomitant]
     Active Substance: FUROSEMIDE
  17. DIAZEPAM. [Concomitant]
     Active Substance: DIAZEPAM
  18. VITAMIN D [Concomitant]
     Active Substance: CHOLECALCIFEROL
  19. DULOXETINE HCI [Concomitant]

REACTIONS (1)
  - Drug hypersensitivity [None]
